FAERS Safety Report 5951680-0 (Version None)
Quarter: 2008Q4

REPORT INFORMATION
  Report Type: 
  Country: None (occurrence: None)
  Receive Date: 20081113
  Receipt Date: 20081030
  Transmission Date: 20090506
  Serious: Yes (Death, Other)
  Sender: FDA-Public Use
  Company Number: JP-ABBOTT-08P-087-0482424-00

PATIENT
  Sex: Male

DRUGS (12)
  1. LEUPROLIDE ACETATE [Suspect]
     Indication: PROSTATE CANCER STAGE IV
     Route: 058
     Dates: start: 20071010, end: 20080319
  2. CANDESARTAN CILEXETIL [Concomitant]
     Indication: HYPERTENSION
     Route: 048
     Dates: end: 20080611
  3. UFT [Concomitant]
     Indication: PROSTATE CANCER STAGE IV
     Route: 048
     Dates: start: 20080520, end: 20080604
  4. BETAMETHASONE [Concomitant]
     Indication: PROSTATE CANCER STAGE IV
     Route: 048
     Dates: start: 20080520, end: 20080611
  5. FUROSEMIDE [Concomitant]
     Indication: OEDEMA
     Route: 048
     Dates: start: 20071020, end: 20080611
  6. NIFEDIPINE [Concomitant]
     Indication: HYPERTENSION
     Route: 048
     Dates: end: 20080611
  7. MAGNESIUM OXIDE [Concomitant]
     Indication: CONSTIPATION
     Route: 048
     Dates: start: 20071016, end: 20080611
  8. SENNA ALEXANDRINA LEAF [Concomitant]
     Indication: CONSTIPATION
     Route: 048
     Dates: start: 20071019, end: 20080611
  9. FAMOTIDINE [Concomitant]
     Indication: PROPHYLAXIS AGAINST GASTROINTESTINAL ULCER
     Route: 048
     Dates: start: 20080520, end: 20080611
  10. BICALUTAMIDE [Concomitant]
     Indication: PROSTATE CANCER STAGE IV
     Route: 048
     Dates: start: 20071010, end: 20080519
  11. ESTRAMUSTINE PHOSPHATE SODIUM [Concomitant]
     Indication: PROSTATE CANCER STAGE IV
     Route: 048
     Dates: start: 20071018, end: 20080519
  12. LOXOPROFEN [Concomitant]
     Indication: CANCER PAIN
     Route: 048
     Dates: end: 20080318

REACTIONS (4)
  - CANCER PAIN [None]
  - METASTASES TO BONE [None]
  - METASTASES TO LYMPH NODES [None]
  - PROSTATE CANCER [None]
